FAERS Safety Report 23365198 (Version 1)
Quarter: 2024Q1

REPORT INFORMATION
  Report Type: Spontaneous
  Country: CA (occurrence: None)
  Receive Date: 20240104
  Receipt Date: 20240104
  Transmission Date: 20240409
  Serious: Yes (Other)
  Sender: FDA-Public Use
  Company Number: CA-PFIZER INC-202300457077

PATIENT
  Age: 77 Year
  Sex: Male
  Weight: 74.84 kg

DRUGS (1)
  1. METHOTREXATE [Suspect]
     Active Substance: METHOTREXATE
     Indication: Psoriatic arthropathy
     Dates: start: 201807, end: 202008

REACTIONS (4)
  - Hepatic cirrhosis [Unknown]
  - Non-alcoholic steatohepatitis [Unknown]
  - Pancytopenia [Unknown]
  - Drug intolerance [Unknown]

NARRATIVE: CASE EVENT DATE: 20231227
